FAERS Safety Report 18365318 (Version 2)
Quarter: 2020Q4

REPORT INFORMATION
  Report Type: Report from Study
  Country: JP (occurrence: JP)
  Receive Date: 20201009
  Receipt Date: 20201021
  Transmission Date: 20210114
  Serious: No
  Sender: FDA-Public Use
  Company Number: JP-JNJFOC-A-CH2018-169847

PATIENT
  Age: 3 Year
  Sex: Male

DRUGS (12)
  1. FUROSEMIDE. [Concomitant]
     Active Substance: FUROSEMIDE
  2. GASTER [Concomitant]
     Active Substance: FAMOTIDINE
  3. TADALAFIL. [Concomitant]
     Active Substance: TADALAFIL
  4. OPSUMIT [Suspect]
     Active Substance: MACITENTAN
     Dosage: 3.5 MG , QD
     Route: 048
     Dates: start: 20190412
  5. REVATIO [Concomitant]
     Active Substance: SILDENAFIL CITRATE
  6. OPSUMIT [Suspect]
     Active Substance: MACITENTAN
     Indication: PULMONARY ARTERIAL HYPERTENSION
     Dosage: 1 MG, QD
     Route: 048
     Dates: start: 20171117
  7. OXYGEN. [Concomitant]
     Active Substance: OXYGEN
  8. ASPIRIN. [Concomitant]
     Active Substance: ASPIRIN
  9. RIVAROXABAN [Concomitant]
     Active Substance: RIVAROXABAN
  10. DIPYRIDAMOLE. [Concomitant]
     Active Substance: DIPYRIDAMOLE
  11. ALDACTONE A [Concomitant]
     Active Substance: SPIRONOLACTONE
  12. WARFARIN [Concomitant]
     Active Substance: WARFARIN

REACTIONS (2)
  - Blood alkaline phosphatase increased [Not Recovered/Not Resolved]
  - Off label use [Unknown]

NARRATIVE: CASE EVENT DATE: 20180118
